FAERS Safety Report 10024156 (Version 1)
Quarter: 2014Q1

REPORT INFORMATION
  Report Type: Spontaneous
  Country: US (occurrence: None)
  Receive Date: 20140318
  Receipt Date: 20140318
  Transmission Date: 20141002
  Serious: Yes (Other)
  Sender: FDA-Public Use
  Company Number: None

PATIENT
  Age: 72 Year
  Sex: Male
  Weight: 77 kg

DRUGS (14)
  1. ZOLPIDEM [Suspect]
     Indication: INSOMNIA
     Route: 048
     Dates: start: 20140315, end: 20140316
  2. ZOLPIDEM [Suspect]
     Indication: INVESTIGATION
     Route: 048
     Dates: start: 20140315, end: 20140316
  3. CAPTOPRIL [Concomitant]
  4. CARVEDILOL [Concomitant]
  5. CEFTRIAZONE [Concomitant]
  6. CLONIDINE [Concomitant]
  7. DIGOXIN [Concomitant]
  8. HYDRALZAINE [Concomitant]
  9. IPRATROPIUM/ALBUTEROL [Concomitant]
  10. LEVOFLOXACIN [Concomitant]
  11. MOMETASONE/FORMOTEROL [Concomitant]
  12. KCL [Concomitant]
  13. SPIRONOLACTONE [Concomitant]
  14. THEOPHYLLINE [Concomitant]

REACTIONS (9)
  - Somnolence [None]
  - Fatigue [None]
  - Mobility decreased [None]
  - Tremor [None]
  - Posturing [None]
  - Neurological decompensation [None]
  - Disorientation [None]
  - Slow response to stimuli [None]
  - Lethargy [None]
